FAERS Safety Report 7446687-0 (Version None)
Quarter: 2011Q2

REPORT INFORMATION
  Report Type: 
  Country: None (occurrence: None)
  Receive Date: 20110429
  Receipt Date: 20100928
  Transmission Date: 20111010
  Serious: No
  Sender: FDA-Public Use
  Company Number: US-ASTRAZENECA-2010SE45600

PATIENT
  Age: 4 Year
  Sex: Male
  Weight: 22.2 kg

DRUGS (6)
  1. PROTEIN SUPPLEMENTS [Concomitant]
  2. VITAMINS [Concomitant]
  3. NEXIUM [Suspect]
     Indication: EOSINOPHILIC OESOPHAGITIS
     Route: 048
     Dates: start: 20100925
  4. ZYRTEC [Concomitant]
  5. NEXIUM [Suspect]
     Indication: GASTROOESOPHAGEAL REFLUX DISEASE
     Route: 048
     Dates: start: 20100925
  6. IRON SUPPLEMENTS [Concomitant]

REACTIONS (1)
  - BLOOD GLUCOSE INCREASED [None]
